FAERS Safety Report 24747338 (Version 1)
Quarter: 2024Q4

REPORT INFORMATION
  Report Type: Spontaneous
  Country: US (occurrence: US)
  Receive Date: 20241218
  Receipt Date: 20241218
  Transmission Date: 20250115
  Serious: No
  Sender: REVANCE THERAPEUTICS
  Company Number: US-REVANCE THERAPEUTICS INC.-US-REV-2024-000528

PATIENT

DRUGS (3)
  1. DAXIBOTULINUMTOXIN A-LANM [Suspect]
     Active Substance: DAXIBOTULINUMTOXIN A-LANM
     Indication: Skin wrinkling
     Dosage: TOTAL 56 U: GLABELLA (28 UNITS) AND FRONTALIS (28 UNITS)
     Route: 065
     Dates: start: 20240530
  2. DAXIBOTULINUMTOXIN A-LANM [Suspect]
     Active Substance: DAXIBOTULINUMTOXIN A-LANM
     Dosage: 6 UNITS IN FRONTALIS
     Route: 065
     Dates: start: 20240617
  3. DAXIBOTULINUMTOXIN A-LANM [Suspect]
     Active Substance: DAXIBOTULINUMTOXIN A-LANM
     Dosage: 6 UNITS IN FRONTALIS
     Route: 065
     Dates: start: 20240801

REACTIONS (4)
  - No adverse event [Unknown]
  - Drug ineffective for unapproved indication [Unknown]
  - Underdose [Unknown]
  - Off label use [Unknown]

NARRATIVE: CASE EVENT DATE: 20240530
